FAERS Safety Report 8083635-7 (Version None)
Quarter: 2012Q1

REPORT INFORMATION
  Report Type: 
  Country: None (occurrence: None)
  Receive Date: 20120127
  Receipt Date: 20110111
  Transmission Date: 20120608
  Serious: No
  Sender: FDA-Public Use
  Company Number: US-ABBOTT-11P-163-0696617-00

PATIENT
  Age: 61 Year
  Sex: Female

DRUGS (11)
  1. CYMBALTA [Concomitant]
     Indication: DEPRESSION
  2. OMEPRAZOLE [Concomitant]
     Indication: GASTROOESOPHAGEAL REFLUX DISEASE
  3. MELOXICAM [Concomitant]
     Indication: RHEUMATOID ARTHRITIS
  4. AREVA [Concomitant]
     Indication: RHEUMATOID ARTHRITIS
  5. PREDNISONE TAB [Concomitant]
     Indication: RHEUMATOID ARTHRITIS
  6. HUMIRA [Suspect]
     Indication: RHEUMATOID ARTHRITIS
     Dates: start: 20101001
  7. FOLIC ACID [Concomitant]
     Indication: PRODUCT USED FOR UNKNOWN INDICATION
  8. VICODIN [Concomitant]
     Indication: PRODUCT USED FOR UNKNOWN INDICATION
     Dosage: 5/500 MG
  9. FISH OIL [Concomitant]
     Indication: PRODUCT USED FOR UNKNOWN INDICATION
  10. DIAZEPAM [Concomitant]
     Indication: ANXIETY
  11. CALCIUM W/VITAMIN D [Concomitant]
     Indication: PRODUCT USED FOR UNKNOWN INDICATION

REACTIONS (5)
  - ANXIETY [None]
  - HEART RATE INCREASED [None]
  - HEART RATE IRREGULAR [None]
  - TREMOR [None]
  - HOT FLUSH [None]
